FAERS Safety Report 4371992-4 (Version None)
Quarter: 2004Q2

REPORT INFORMATION
  Report Type: 
  Country: None (occurrence: None)
  Receive Date: 20040602
  Receipt Date: 20040518
  Transmission Date: 20050107
  Serious: Yes (Hospitalization)
  Sender: FDA-Public Use
  Company Number: S04-USA-02805-01

PATIENT
  Age: 88 Year
  Sex: Female
  Weight: 52.6173 kg

DRUGS (11)
  1. NAMENDA [Suspect]
     Indication: DEMENTIA ALZHEIMER'S TYPE
     Dosage: 20 MG QD PO
     Route: 048
     Dates: start: 20040301
  2. MIRAPEX [Concomitant]
  3. FLOVENT [Concomitant]
  4. ZELNORM [Concomitant]
  5. SINEMET [Concomitant]
  6. LANOXIN [Concomitant]
  7. REMAFEN (DICLOFENAC SODIUM) [Concomitant]
  8. COMBIVENT [Concomitant]
  9. SEREVENT [Concomitant]
  10. NEXIUM [Concomitant]
  11. LASIX [Concomitant]

REACTIONS (11)
  - DECREASED ACTIVITY [None]
  - DELIRIUM [None]
  - FAECALOMA [None]
  - FOOT FRACTURE [None]
  - ISCHAEMIA [None]
  - LOSS OF CONSCIOUSNESS [None]
  - NUCLEAR MAGNETIC RESONANCE IMAGING ABNORMAL [None]
  - OSTEOPOROTIC FRACTURE [None]
  - PALLOR [None]
  - STRESS FRACTURE [None]
  - SYNCOPE VASOVAGAL [None]
